FAERS Safety Report 5370594-0 (Version None)
Quarter: 2007Q2

REPORT INFORMATION
  Report Type: 
  Country: None (occurrence: None)
  Receive Date: 20070622
  Receipt Date: 20070612
  Transmission Date: 20071010
  Serious: Yes (Hospitalization)
  Sender: FDA-Public Use
  Company Number: 2217-143

PATIENT
  Age: 62 Year
  Sex: Female

DRUGS (2)
  1. TRIAMCINOLONE ACETONIDE [Suspect]
     Indication: CHOROIDAL NEOVASCULARISATION
     Dosage: 4 MG ONCE
  2. VISUDYNE [Concomitant]

REACTIONS (8)
  - CATARACT [None]
  - HERPES SIMPLEX [None]
  - INTRAOCULAR PRESSURE INCREASED [None]
  - NECROTISING RETINITIS [None]
  - POST PROCEDURAL COMPLICATION [None]
  - RETINAL EXUDATES [None]
  - RETINAL HAEMORRHAGE [None]
  - RETINITIS VIRAL [None]
